FAERS Safety Report 5216135-X (Version None)
Quarter: 2007Q1

REPORT INFORMATION
  Report Type: 
  Country: None (occurrence: None)
  Receive Date: 20070123
  Receipt Date: 20070116
  Transmission Date: 20070707
  Serious: No
  Sender: FDA-Public Use
  Company Number: US-SANOFI-SYNTHELABO-A03200700438

PATIENT
  Age: 73 Year
  Sex: Female

DRUGS (8)
  1. LIPITOR [Concomitant]
     Dosage: UNK
     Route: 048
  2. METOPROLOL SUCCINATE [Concomitant]
     Dosage: UNK
     Route: 048
  3. GLYBURIDE [Concomitant]
     Dosage: UNK
     Route: 048
  4. ENALAPRIL MALEATE [Concomitant]
     Dosage: UNK
     Route: 048
  5. METFORMIN HCL [Concomitant]
     Dosage: UNK
     Route: 048
  6. ASPIRIN [Concomitant]
     Dosage: UNK
     Route: 048
  7. FUROSEMIDE [Concomitant]
     Dosage: UNK
     Route: 048
  8. PLAVIX [Suspect]
     Indication: VASCULAR BYPASS GRAFT
     Route: 048
     Dates: start: 20061213

REACTIONS (1)
  - DYSPNOEA [None]
